FAERS Safety Report 4340041-6 (Version None)
Quarter: 2004Q2

REPORT INFORMATION
  Report Type: 
  Country: None (occurrence: None)
  Receive Date: 20040416
  Receipt Date: 20040227
  Transmission Date: 20050107
  Serious: Yes (Death)
  Sender: FDA-Public Use
  Company Number: CZ-ROCHE-360106

PATIENT
  Age: 44 Year
  Sex: Male

DRUGS (3)
  1. MIDAZOLAM HCL [Suspect]
     Indication: INSOMNIA
     Route: 048
     Dates: start: 20040202, end: 20040202
  2. LOKREN [Concomitant]
     Indication: HYPERTENSION
     Route: 048
     Dates: start: 20000615, end: 20040202
  3. ENAP [Concomitant]
     Indication: HYPERTENSION
     Route: 048
     Dates: start: 20010615, end: 20040202

REACTIONS (1)
  - OVERDOSE [None]
